FAERS Safety Report 5013711-4 (Version None)
Quarter: 2006Q2

REPORT INFORMATION
  Report Type: 
  Country: None (occurrence: None)
  Receive Date: 20060525
  Receipt Date: 20060509
  Transmission Date: 20061013
  Serious: Yes (Hospitalization, Other)
  Sender: FDA-Public Use
  Company Number: 2006-01121

PATIENT
  Age: 50 Year
  Sex: Female
  Weight: 77.2 kg

DRUGS (6)
  1. VELCADE [Suspect]
     Indication: MULTIPLE MYELOMA
     Dosage: 1.30 MG/M2, INTRAVENOUS
     Route: 042
     Dates: start: 20060410, end: 20060420
  2. ZOMETA [Concomitant]
  3. PROCRIT [Concomitant]
  4. DILAUDID [Concomitant]
  5. PROTONIX [Concomitant]
  6. DEXAMETHASONE TAB [Concomitant]

REACTIONS (4)
  - CAROTID ARTERY THROMBOSIS [None]
  - CONFUSIONAL STATE [None]
  - PLATELET COUNT DECREASED [None]
  - RETINAL ARTERY OCCLUSION [None]
